FAERS Safety Report 4371926-2 (Version None)
Quarter: 2004Q2

REPORT INFORMATION
  Report Type: 
  Country: None (occurrence: None)
  Receive Date: 20040602
  Receipt Date: 20031210
  Transmission Date: 20050107
  Serious: Yes (Other)
  Sender: FDA-Public Use
  Company Number: US-JNJFOC-20031203603

PATIENT
  Age: 65 Year
  Sex: Female
  Weight: 99.7913 kg

DRUGS (4)
  1. PROPULSID [Suspect]
     Indication: GASTRIC DISORDER
     Dosage: 20 MG
     Dates: start: 19980203, end: 19980401
  2. CLARITHROMYCIN [Concomitant]
  3. FLUCONAZOLE [Concomitant]
  4. CEPHALEXIN [Concomitant]

REACTIONS (2)
  - CHEST PAIN [None]
  - MITRAL VALVE DISEASE [None]
